FAERS Safety Report 6898882-7 (Version None)
Quarter: 2010Q3

REPORT INFORMATION
  Report Type: 
  Country: None (occurrence: None)
  Receive Date: 20100802
  Receipt Date: 20071212
  Transmission Date: 20110219
  Serious: Yes (Other)
  Sender: FDA-Public Use
  Company Number: US-PFIZER INC-2007083321

PATIENT
  Sex: Female
  Weight: 97.727 kg

DRUGS (11)
  1. LYRICA [Suspect]
     Indication: PAIN
     Dates: start: 20060101
  2. COREG [Concomitant]
  3. COREG [Concomitant]
  4. SPIRONOLACTONE [Concomitant]
  5. SPIRONOLACTONE [Concomitant]
  6. FUROSEMIDE [Concomitant]
  7. FUROSEMIDE [Concomitant]
  8. ADVAIR DISKUS 100/50 [Concomitant]
  9. ADVAIR DISKUS 100/50 [Concomitant]
  10. PAROXETINE HCL [Concomitant]
  11. PAROXETINE HCL [Concomitant]

REACTIONS (2)
  - DRUG INEFFECTIVE [None]
  - NERVE INJURY [None]
